FAERS Safety Report 9435856 (Version 1)
Quarter: 2013Q3

REPORT INFORMATION
  Report Type: Spontaneous
  Country: GB (occurrence: GB)
  Receive Date: 20130801
  Receipt Date: 20130801
  Transmission Date: 20140515
  Serious: Yes (Other)
  Sender: FDA-Public Use
  Company Number: GB-B.I. PHARMACEUTICALS,INC./RIDGEFIELD-2013-UK-01477UK

PATIENT
  Age: 76 Year
  Sex: Female
  Weight: 93 kg

DRUGS (15)
  1. TRAJENTA [Suspect]
     Dates: start: 20130529
  2. ADCAL [Concomitant]
     Dates: start: 20130510, end: 20130607
  3. ALGINATES [Concomitant]
     Dates: start: 20130410, end: 20130417
  4. ASPIRIN [Concomitant]
     Dates: start: 20130325, end: 20130625
  5. ATENOLOL [Concomitant]
     Dates: start: 20130325, end: 20130625
  6. ATORVASTATIN [Concomitant]
     Dates: start: 20130325, end: 20130625
  7. BENDROFLUMETHIAZIDE [Concomitant]
     Dates: start: 20130325, end: 20130625
  8. CARBIMAZOLE [Concomitant]
     Dates: start: 20130325
  9. CO-CODAMOL [Concomitant]
     Dates: start: 20130325, end: 20130622
  10. GLICLAZIDE [Concomitant]
     Dates: start: 20130325
  11. HYPROMELLOSE [Concomitant]
     Dates: start: 20130325
  12. METFORMIN [Concomitant]
     Dates: start: 20130325, end: 20130625
  13. NICARDIPINE HYDROCHLORIDE [Concomitant]
     Dates: start: 20130325, end: 20130625
  14. OMEPRAZOLE [Concomitant]
     Dates: start: 20130402, end: 20130625
  15. RAMIPRIL [Concomitant]
     Dates: start: 20130402, end: 20130625

REACTIONS (2)
  - Rhinitis [Recovered/Resolved]
  - Lacrimation increased [Recovered/Resolved]
